FAERS Safety Report 7661175-4 (Version None)
Quarter: 2011Q3

REPORT INFORMATION
  Report Type: 
  Country: None (occurrence: None)
  Receive Date: 20110805
  Receipt Date: 20101111
  Transmission Date: 20111222
  Serious: No
  Sender: FDA-Public Use
  Company Number: US-ABBOTT-10P-163-0684839-00

PATIENT
  Sex: Male

DRUGS (7)
  1. BYSTOLIC [Concomitant]
     Indication: PRODUCT USED FOR UNKNOWN INDICATION
  2. NIASPAN [Suspect]
     Indication: BLOOD TRIGLYCERIDES INCREASED
     Dosage: DAILY AT BEDTIME
     Route: 048
     Dates: start: 20101106
  3. ENALAPRIL MALEATE [Concomitant]
     Indication: PRODUCT USED FOR UNKNOWN INDICATION
  4. LOVAZA [Suspect]
     Indication: PRODUCT USED FOR UNKNOWN INDICATION
     Route: 048
  5. PLAVIX [Concomitant]
     Indication: PRODUCT USED FOR UNKNOWN INDICATION
  6. ASPIRIN [Concomitant]
     Indication: PRODUCT USED FOR UNKNOWN INDICATION
  7. GLIPIZIDE [Concomitant]
     Indication: PRODUCT USED FOR UNKNOWN INDICATION

REACTIONS (3)
  - NAUSEA [None]
  - ABDOMINAL DISCOMFORT [None]
  - PRURITUS [None]
